FAERS Safety Report 9268462 (Version 1)
Quarter: 2013Q2

REPORT INFORMATION
  Report Type: Spontaneous
  Country: US (occurrence: US)
  Receive Date: 20130502
  Receipt Date: 20130502
  Transmission Date: 20140414
  Serious: Yes (Hospitalization)
  Sender: FDA-Public Use
  Company Number: US-ALEXION-A201202197

PATIENT
  Age: 75 Year
  Sex: Male
  Weight: 80.7 kg

DRUGS (9)
  1. SOLIRIS 300MG [Suspect]
     Indication: PAROXYSMAL NOCTURNAL HAEMOGLOBINURIA
     Dosage: 600 MG
     Route: 042
  2. SOLIRIS 300MG [Suspect]
     Dosage: 900 MG
     Route: 042
  3. FOLIC ACID [Concomitant]
     Dosage: UNK
  4. EXJADE [Concomitant]
     Indication: BLOOD IRON INCREASED
     Dosage: UNK
  5. LIPITOR [Concomitant]
     Indication: BLOOD CHOLESTEROL INCREASED
     Dosage: UNK
  6. PLAVIX [Concomitant]
     Indication: CORONARY ARTERY DISEASE
     Dosage: UNK
  7. ZOLOFT [Concomitant]
     Indication: DEPRESSION
     Dosage: UNK
  8. TRAMADOL [Concomitant]
     Indication: BACK PAIN
     Dosage: UNK
  9. HYTRIN [Concomitant]
     Indication: BENIGN PROSTATIC HYPERPLASIA
     Dosage: UNK

REACTIONS (3)
  - Atrial fibrillation [Recovered/Resolved]
  - Paroxysmal nocturnal haemoglobinuria [Recovered/Resolved]
  - Condition aggravated [Recovered/Resolved]
